FAERS Safety Report 5257068-2 (Version None)
Quarter: 2007Q1

REPORT INFORMATION
  Report Type: 
  Country: None (occurrence: None)
  Receive Date: 20070307
  Receipt Date: 20070228
  Transmission Date: 20070707
  Serious: Yes (Other)
  Sender: FDA-Public Use
  Company Number: GB-AVENTIS-200710928EU

PATIENT
  Age: 68 Year

DRUGS (9)
  1. LANSOPRAZOLE [Suspect]
     Indication: DRUG USE FOR UNKNOWN INDICATION
  2. FUROSEMIDE [Suspect]
     Indication: DRUG USE FOR UNKNOWN INDICATION
  3. ACIPIMOX [Suspect]
     Indication: DRUG USE FOR UNKNOWN INDICATION
  4. AMIODARONE HCL [Suspect]
     Indication: DRUG USE FOR UNKNOWN INDICATION
  5. ASPIRIN [Suspect]
     Indication: DRUG USE FOR UNKNOWN INDICATION
  6. BISOPROLOL [Suspect]
     Indication: DRUG USE FOR UNKNOWN INDICATION
  7. DIGOXIN [Suspect]
     Indication: DRUG USE FOR UNKNOWN INDICATION
  8. EZETIMIBE [Suspect]
     Indication: DRUG USE FOR UNKNOWN INDICATION
  9. PERINDOPRIL ERBUMINE [Suspect]
     Indication: DRUG USE FOR UNKNOWN INDICATION

REACTIONS (5)
  - DIZZINESS [None]
  - DYSPNOEA [None]
  - FATIGUE [None]
  - OEDEMA [None]
  - PARAESTHESIA [None]
